FAERS Safety Report 6491375-0 (Version None)
Quarter: 2009Q4

REPORT INFORMATION
  Report Type: 
  Country: None (occurrence: None)
  Receive Date: 20091125
  Receipt Date: 20081208
  Transmission Date: 20100525
  Serious: Yes (Hospitalization, Other)
  Sender: FDA-Public Use
  Company Number: 2008BH011896

PATIENT
  Age: 20 Year
  Sex: Female
  Weight: 61.2356 kg

DRUGS (1)
  1. DIANEAL [Suspect]
     Indication: RENAL FAILURE CHRONIC
     Dosage: 14 L; EVERY DAY; IP
     Route: 033
     Dates: end: 20081117

REACTIONS (3)
  - HYPOTENSION [None]
  - MEDICAL DEVICE COMPLICATION [None]
  - PERITONITIS BACTERIAL [None]
